FAERS Safety Report 9184260 (Version 1)
Quarter: 2012Q4

REPORT INFORMATION
  Report Type: 
  Country: US (occurrence: US)
  Receive Date: 20121031
  Receipt Date: 20121031
  Transmission Date: 20130627
  Serious: No
  Sender: FDA-Public Use
  Company Number: US-009507513-1210USA005645

PATIENT
  Age: 25 Year
  Sex: Female

DRUGS (1)
  1. NEXPLANON [Suspect]
     Indication: CONTRACEPTION
     Dosage: 1 DF, 3 year implant
     Dates: start: 20121003

REACTIONS (5)
  - Implant site pain [Unknown]
  - Implant site erythema [Unknown]
  - Implant site haemorrhage [Unknown]
  - Implant site swelling [Unknown]
  - Implant site infection [Unknown]
